FAERS Safety Report 23874760 (Version 4)
Quarter: 2024Q3

REPORT INFORMATION
  Report Type: Spontaneous
  Country: US (occurrence: US)
  Receive Date: 20240520
  Receipt Date: 20240820
  Transmission Date: 20241016
  Serious: No
  Sender: PFIZER
  Company Number: US-PFIZER INC-202400107753

PATIENT
  Age: 14 Year
  Sex: Male
  Weight: 39.92 kg

DRUGS (1)
  1. GENOTROPIN [Suspect]
     Active Substance: SOMATROPIN
     Indication: Growth hormone deficiency
     Dosage: 2.8 MG, 1X/DAY (EVERY NIGHT)
     Dates: start: 202310

REACTIONS (5)
  - Wrong technique in device usage process [Unknown]
  - Device use error [Unknown]
  - Device mechanical issue [Unknown]
  - Device difficult to use [Unknown]
  - Poor quality device used [Unknown]
